FAERS Safety Report 6359865-9 (Version None)
Quarter: 2009Q3

REPORT INFORMATION
  Report Type: 
  Country: None (occurrence: None)
  Receive Date: 20090917
  Receipt Date: 20090910
  Transmission Date: 20100115
  Serious: Yes (Hospitalization)
  Sender: FDA-Public Use
  Company Number: B0593404A

PATIENT
  Age: 79 Year
  Sex: Male

DRUGS (2)
  1. SALMETEROL [Suspect]
     Indication: CHRONIC OBSTRUCTIVE PULMONARY DISEASE
     Dosage: 100UG TWICE PER DAY
     Route: 055
     Dates: start: 20080724
  2. MIFLONIDE [Concomitant]

REACTIONS (4)
  - COUGH [None]
  - DYSPNOEA AT REST [None]
  - PNEUMONIA [None]
  - PYREXIA [None]
